FAERS Safety Report 14154120 (Version 1)
Quarter: 2017Q4

REPORT INFORMATION
  Report Type: Spontaneous
  Country: US (occurrence: US)
  Receive Date: 20171102
  Receipt Date: 20171102
  Transmission Date: 20180321
  Serious: Yes (Other)
  Sender: FDA-Public Use
  Company Number: US-BAYER-2017-207419

PATIENT
  Age: 17 Month
  Sex: Female
  Weight: 10 kg

DRUGS (1)
  1. MIRALAX [Suspect]
     Active Substance: POLYETHYLENE GLYCOL 3350
     Indication: GASTROINTESTINAL DISORDER
     Dosage: 17 G, UNK
     Route: 048
     Dates: start: 201705

REACTIONS (8)
  - Eye movement disorder [Unknown]
  - Off label use [None]
  - Seizure [Unknown]
  - Product use issue [Unknown]
  - Aggression [Unknown]
  - Excessive eye blinking [Unknown]
  - Wrong technique in product usage process [None]
  - Drug administered to patient of inappropriate age [None]

NARRATIVE: CASE EVENT DATE: 201706
